FAERS Safety Report 5344350-3 (Version None)
Quarter: 2007Q2

REPORT INFORMATION
  Report Type: 
  Country: None (occurrence: None)
  Receive Date: 20070604
  Receipt Date: 20070521
  Transmission Date: 20071010
  Serious: Yes (Other)
  Sender: FDA-Public Use
  Company Number: US-SHR-US-2007-005349

PATIENT
  Age: 53 Year
  Sex: Female

DRUGS (4)
  1. BETASERON [Suspect]
     Dosage: 4 MIU, EVERY 2D
     Route: 058
     Dates: start: 20070108
  2. BETASERON [Suspect]
     Dosage: 8 MIU, EVERY 2D
     Route: 058
  3. PROVIGIL [Concomitant]
     Indication: FATIGUE
  4. IBUPROFEN [Suspect]

REACTIONS (9)
  - ALOPECIA [None]
  - ASTHENOPIA [None]
  - DEPRESSION [None]
  - EYE PAIN [None]
  - FATIGUE [None]
  - HAEMORRHAGIC ANAEMIA [None]
  - INFLUENZA LIKE ILLNESS [None]
  - INITIAL INSOMNIA [None]
  - VISION BLURRED [None]
